FAERS Safety Report 17184210 (Version 1)
Quarter: 2019Q4

REPORT INFORMATION
  Report Type: Spontaneous
  Country: US (occurrence: US)
  Receive Date: 20191219
  Receipt Date: 20191219
  Transmission Date: 20200122
  Serious: Yes (Other)
  Sender: FDA-Public Use
  Company Number: None

PATIENT
  Age: 11 Year
  Sex: Male
  Weight: 47.7 kg

DRUGS (1)
  1. OSELTAMIVIR PHOS CAPS 75MG [Suspect]
     Active Substance: OSELTAMIVIR PHOSPHATE
     Indication: INFLUENZA
     Dosage: ?          QUANTITY:10 CAPSULE(S);?
     Route: 048
     Dates: start: 20191216, end: 20191216

REACTIONS (5)
  - Sleep terror [None]
  - Confusional state [None]
  - Muscle twitching [None]
  - Panic attack [None]
  - Hallucination [None]

NARRATIVE: CASE EVENT DATE: 20191216
